FAERS Safety Report 13353589 (Version 3)
Quarter: 2017Q2

REPORT INFORMATION
  Report Type: Spontaneous
  Country: SK (occurrence: SK)
  Receive Date: 20170321
  Receipt Date: 20170510
  Transmission Date: 20170830
  Serious: Yes (Death, Hospitalization, Other)
  Sender: FDA-Public Use
  Company Number: SK-ALEXION PHARMACEUTICALS INC.-A201702648

PATIENT
  Sex: Female

DRUGS (2)
  1. SOLIRIS [Suspect]
     Active Substance: ECULIZUMAB
     Dosage: 1200 MG, Q2W
     Route: 042
     Dates: start: 20170201
  2. SOLIRIS [Suspect]
     Active Substance: ECULIZUMAB
     Indication: HAEMOLYTIC URAEMIC SYNDROME
     Dosage: 900 MG, QW
     Route: 042
     Dates: start: 20170103

REACTIONS (2)
  - Pneumonia [Fatal]
  - Leukopenia [Not Recovered/Not Resolved]

NARRATIVE: CASE EVENT DATE: 20170303
